FAERS Safety Report 23268936 (Version 1)
Quarter: 2023Q4

REPORT INFORMATION
  Report Type: Spontaneous
  Country: US (occurrence: US)
  Receive Date: 20231206
  Receipt Date: 20231206
  Transmission Date: 20240110
  Serious: No
  Sender: FDA-Public Use
  Company Number: US-009507513-2311USA008167

PATIENT
  Age: 6 Year
  Sex: Male

DRUGS (8)
  1. TEMODAR [Suspect]
     Active Substance: TEMOZOLOMIDE
     Indication: Rhabdoid tumour
     Route: 048
  2. CYTARABINE [Concomitant]
     Active Substance: CYTARABINE
     Indication: Rhabdoid tumour
  3. METHOTREXATE [Concomitant]
     Active Substance: METHOTREXATE
     Indication: Rhabdoid tumour
  4. ACTINOMYCIN D [Concomitant]
     Active Substance: DACTINOMYCIN
     Indication: Rhabdoid tumour
  5. CYCLOPHOSPHAMIDE [Concomitant]
     Active Substance: CYCLOPHOSPHAMIDE
     Indication: Rhabdoid tumour
  6. CISPLATIN [Concomitant]
     Active Substance: CISPLATIN
     Indication: Rhabdoid tumour
  7. ETOPOSIDE [Concomitant]
     Active Substance: ETOPOSIDE
     Indication: Rhabdoid tumour
  8. DOXORUBICIN [Concomitant]
     Active Substance: DOXORUBICIN
     Indication: Rhabdoid tumour

REACTIONS (1)
  - Product use in unapproved indication [Unknown]
